FAERS Safety Report 4979004-6 (Version None)
Quarter: 2006Q2

REPORT INFORMATION
  Report Type: 
  Country: None (occurrence: None)
  Receive Date: 20060419
  Receipt Date: 20060419
  Transmission Date: 20061013
  Serious: No
  Sender: FDA-Public Use
  Company Number: None

PATIENT
  Sex: Female
  Weight: 63.5036 kg

DRUGS (1)
  1. ZITHROMAX [Suspect]
     Indication: EAR INFECTION
     Dosage: 250 MG TABLETS    2/1/1/1/1/    PO
     Route: 048
     Dates: start: 20050409, end: 20050411

REACTIONS (3)
  - DEAFNESS [None]
  - EAR DISCOMFORT [None]
  - TINNITUS [None]
